FAERS Safety Report 5041694-X (Version None)
Quarter: 2006Q2

REPORT INFORMATION
  Report Type: 
  Country: None (occurrence: None)
  Receive Date: 20060630
  Receipt Date: 20060619
  Transmission Date: 20061013
  Serious: Yes (Other)
  Sender: FDA-Public Use
  Company Number: 2006077104

PATIENT

DRUGS (3)
  1. ATORVASTATIN CALCIUM [Suspect]
     Dosage: ORAL
     Route: 048
  2. PLAVIX [Suspect]
     Indication: STENT PLACEMENT
     Dosage: 75 MG (75 MG, 1 IN 2 D)
  3. PLAVIX [Suspect]
     Indication: SURGICAL PROCEDURE REPEATED
     Dosage: 75 MG (75 MG, 1 IN 2 D)

REACTIONS (1)
  - STENT OCCLUSION [None]
